FAERS Safety Report 8169651-5 (Version None)
Quarter: 2012Q1

REPORT INFORMATION
  Report Type: 
  Country: None (occurrence: None)
  Receive Date: 20120228
  Receipt Date: 20120221
  Transmission Date: 20120608
  Serious: Yes (Other)
  Sender: FDA-Public Use
  Company Number: US-PFIZER INC-2012013566

PATIENT
  Sex: Female
  Weight: 72.562 kg

DRUGS (3)
  1. GLIPIZIDE [Suspect]
     Indication: DIABETES MELLITUS
     Dosage: ONCE A DAY AS NEEDED
     Route: 048
     Dates: end: 20120201
  2. PROTONIX [Concomitant]
     Dosage: UNK
  3. NEURONTIN [Concomitant]
     Dosage: UNK

REACTIONS (5)
  - BLOOD GLUCOSE DECREASED [None]
  - NERVOUSNESS [None]
  - FEELING ABNORMAL [None]
  - ASTHENIA [None]
  - DRUG INTOLERANCE [None]
